FAERS Safety Report 9485678 (Version 1)
Quarter: 2013Q3

REPORT INFORMATION
  Report Type: Spontaneous
  Country: US (occurrence: None)
  Receive Date: 20130827
  Receipt Date: 20130827
  Transmission Date: 20140515
  Serious: Yes (Hospitalization)
  Sender: FDA-Public Use
  Company Number: None

PATIENT
  Age: 63 Year
  Sex: Male

DRUGS (1)
  1. MONONINE [Suspect]
     Indication: HAEMOPHILIA
     Route: 042
     Dates: start: 20130822, end: 20130822

REACTIONS (4)
  - Chills [None]
  - Feeling cold [None]
  - Vomiting [None]
  - Lethargy [None]
